FAERS Safety Report 17401663 (Version 1)
Quarter: 2020Q1

REPORT INFORMATION
  Report Type: Spontaneous
  Country: US (occurrence: US)
  Receive Date: 20200209
  Receipt Date: 20200209
  Transmission Date: 20200409
  Serious: Yes (Life-Threatening)
  Sender: FDA-Public Use
  Company Number: None

PATIENT
  Age: 50 Year
  Sex: Female
  Weight: 90 kg

DRUGS (4)
  1. OXYCODONE [Suspect]
     Active Substance: OXYCODONE
     Indication: WOUND COMPLICATION
     Dosage: ?          OTHER FREQUENCY:EVERY 2 HOURS;OTHER ROUTE:FOOD TUBE?
  2. LORAZEPAM. [Suspect]
     Active Substance: LORAZEPAM
     Indication: GRIMACING
     Dosage: ?          OTHER ROUTE:FOOD TUBE?
     Dates: end: 20200124
  3. LORAZEPAM. [Suspect]
     Active Substance: LORAZEPAM
     Indication: ANXIETY
     Dosage: ?          OTHER ROUTE:FOOD TUBE?
     Dates: end: 20200124
  4. OXYCODONE [Suspect]
     Active Substance: OXYCODONE
     Indication: DECUBITUS ULCER
     Dosage: ?          OTHER FREQUENCY:EVERY 2 HOURS;OTHER ROUTE:FOOD TUBE?

REACTIONS (4)
  - Respiratory failure [None]
  - Inappropriate schedule of product administration [None]
  - Coma [None]
  - Toxicity to various agents [None]

NARRATIVE: CASE EVENT DATE: 20200123
